FAERS Safety Report 7275984-7 (Version None)
Quarter: 2011Q1

REPORT INFORMATION
  Report Type: 
  Country: None (occurrence: None)
  Receive Date: 20110204
  Receipt Date: 20110203
  Transmission Date: 20110831
  Serious: Yes (Hospitalization)
  Sender: FDA-Public Use
  Company Number: A0911734A

PATIENT
  Sex: Female

DRUGS (1)
  1. SORIATANE [Suspect]
     Dosage: 25MG UNKNOWN
     Route: 048
     Dates: start: 20010501

REACTIONS (1)
  - EAR INFECTION [None]
